FAERS Safety Report 23304426 (Version 1)
Quarter: 2023Q4

REPORT INFORMATION
  Report Type: Spontaneous
  Country: US (occurrence: US)
  Receive Date: 20231218
  Receipt Date: 20231218
  Transmission Date: 20240110
  Serious: Yes (Death)
  Sender: FDA-Public Use
  Company Number: US-002147023-NVSC2023US267084

PATIENT
  Age: 66 Year
  Sex: Male

DRUGS (2)
  1. LEQVIO [Suspect]
     Active Substance: INCLISIRAN SODIUM
     Indication: Hyperlipidaemia
     Dosage: 284 MG (1 MONTH INITIALLY, 3-MONTH FOLLOW-UP, AND 6 MONTH MAINTENANCE)
     Route: 058
     Dates: start: 202310, end: 202311
  2. LEQVIO [Suspect]
     Active Substance: INCLISIRAN SODIUM
     Indication: Arteriosclerosis

REACTIONS (3)
  - Hypotension [Fatal]
  - Fatigue [Fatal]
  - Vision blurred [Fatal]

NARRATIVE: CASE EVENT DATE: 20231001
